FAERS Safety Report 8739468 (Version 3)
Quarter: 2012Q4

REPORT INFORMATION
  Report Type: 
  Country: AU (occurrence: AU)
  Receive Date: 20120823
  Receipt Date: 20121130
  Transmission Date: 20130627
  Serious: Yes (Hospitalization)
  Sender: FDA-Public Use
  Company Number: AU-009507513-1208AUS006675

PATIENT
  Sex: Female

DRUGS (1)
  1. VICTRELIS 200 MG [Suspect]
     Dosage: 200 mg, Unknown
     Route: 048

REACTIONS (1)
  - Stress [Unknown]
